FAERS Safety Report 12211379 (Version 1)
Quarter: 2016Q1

REPORT INFORMATION
  Report Type: Report from Study
  Country: FR (occurrence: FR)
  Receive Date: 20160325
  Receipt Date: 20160325
  Transmission Date: 20160526
  Serious: Yes (Other)
  Sender: FDA-Public Use
  Company Number: FR-ROCHE-1729260

PATIENT

DRUGS (8)
  1. BEVACIZUMAB [Suspect]
     Active Substance: BEVACIZUMAB
     Indication: NON-SMALL CELL LUNG CANCER
     Route: 065
  2. PACLITAXEL. [Suspect]
     Active Substance: PACLITAXEL
     Indication: NON-SMALL CELL LUNG CANCER
     Route: 065
  3. ERLOTINIB [Suspect]
     Active Substance: ERLOTINIB
     Indication: NON-SMALL CELL LUNG CANCER
     Route: 065
  4. CARBOPLATIN. [Suspect]
     Active Substance: CARBOPLATIN
     Indication: NON-SMALL CELL LUNG CANCER
     Route: 065
  5. GEMCITABINE [Suspect]
     Active Substance: GEMCITABINE\GEMCITABINE HYDROCHLORIDE
     Indication: NON-SMALL CELL LUNG CANCER
     Route: 065
  6. CISPLATIN. [Suspect]
     Active Substance: CISPLATIN
     Indication: NON-SMALL CELL LUNG CANCER
     Route: 065
  7. TG4010 [Suspect]
     Active Substance: INVESTIGATIONAL PRODUCT
     Indication: NON-SMALL CELL LUNG CANCER
     Dosage: 10E8 PLAQUE-FORMING UNITS OF TG4010
     Route: 058
  8. PEMETREXED [Suspect]
     Active Substance: PEMETREXED
     Indication: NON-SMALL CELL LUNG CANCER
     Route: 065

REACTIONS (36)
  - Decreased appetite [Unknown]
  - Pulmonary embolism [Unknown]
  - Dehydration [Unknown]
  - Peripheral ischaemia [Unknown]
  - Respiratory tract infection [Unknown]
  - Pneumonia [Unknown]
  - Leukopenia [Unknown]
  - Weight decreased [Unknown]
  - Thrombocytopenia [Unknown]
  - Headache [Unknown]
  - Tumour pain [Unknown]
  - Superior vena cava syndrome [Unknown]
  - Anaemia [Unknown]
  - Nausea [Unknown]
  - Vomiting [Unknown]
  - Cancer pain [Unknown]
  - Neutropenia [Unknown]
  - Renal failure [Unknown]
  - Hyponatraemia [Unknown]
  - Diarrhoea [Unknown]
  - Back pain [Unknown]
  - Erysipelas [Unknown]
  - Gamma-glutamyltransferase increased [Unknown]
  - Fatigue [Unknown]
  - Febrile neutropenia [Unknown]
  - Abdominal pain [Unknown]
  - Alopecia [Unknown]
  - Lymphopenia [Unknown]
  - Lung infection [Unknown]
  - Dyspnoea [Unknown]
  - Hypertension [Unknown]
  - Stomatitis [Unknown]
  - Musculoskeletal pain [Unknown]
  - Hypokalaemia [Unknown]
  - Haemoptysis [Unknown]
  - Hypophosphataemia [Unknown]
